FAERS Safety Report 8238550-2 (Version None)
Quarter: 2012Q1

REPORT INFORMATION
  Report Type: 
  Country: None (occurrence: None)
  Receive Date: 20120327
  Receipt Date: 20120319
  Transmission Date: 20120608
  Serious: Yes (Hospitalization)
  Sender: FDA-Public Use
  Company Number: JP-FRI-1000028406

PATIENT
  Sex: Female
  Weight: 39 kg

DRUGS (12)
  1. ZOLOFT [Concomitant]
     Indication: DEPRESSION
     Dates: start: 20111114, end: 20111227
  2. LEXAPRO [Suspect]
     Dosage: 10 MG
     Route: 048
     Dates: start: 20111228, end: 20120124
  3. RISPERDAL [Suspect]
     Dosage: 0.5 ML
     Route: 048
     Dates: start: 20111114, end: 20111129
  4. GASMOTIN [Concomitant]
     Route: 048
     Dates: end: 20120201
  5. RISPERDAL [Suspect]
     Indication: DELUSION
     Dosage: 1 ML
     Route: 048
     Dates: start: 20111021, end: 20111113
  6. RISPERDAL [Suspect]
     Dosage: 1.5 ML
     Route: 048
     Dates: start: 20111130, end: 20111204
  7. LEXAPRO [Suspect]
     Indication: DEPRESSION
     Dosage: 10 MG
     Route: 048
     Dates: start: 20111221, end: 20111227
  8. ENSURE LIQUID [Concomitant]
     Route: 048
     Dates: end: 20120201
  9. MAGMITT [Concomitant]
     Indication: CONSTIPATION
     Dosage: 1980 MG
     Route: 048
     Dates: start: 20111114, end: 20120131
  10. LEXAPRO [Suspect]
     Dosage: 10 MG
     Route: 048
     Dates: start: 20120125, end: 20120131
  11. RISPERDAL [Suspect]
     Dosage: 2 ML
     Route: 048
     Dates: start: 20111205, end: 20120131
  12. SENNOSIDE [Concomitant]
     Indication: CONSTIPATION
     Dosage: 24 MG
     Route: 048
     Dates: start: 20111121, end: 20120131

REACTIONS (2)
  - CONDITION AGGRAVATED [None]
  - LIVER DISORDER [None]
